FAERS Safety Report 6616253-5 (Version None)
Quarter: 2010Q1

REPORT INFORMATION
  Report Type: 
  Country: None (occurrence: None)
  Receive Date: 20100305
  Receipt Date: 20100223
  Transmission Date: 20100710
  Serious: Yes (Hospitalization)
  Sender: FDA-Public Use
  Company Number: US-WATSON-2010-02172

PATIENT
  Age: 58 Year
  Sex: Male

DRUGS (5)
  1. AMPICILLIN SODIUM (WATSON LABORATORIES) [Suspect]
     Indication: PROPHYLAXIS
     Dosage: 2 G, SINGLE
  2. PROMETHAZINE [Suspect]
     Indication: NAUSEA
     Dosage: 12.5 MG, X 3
  3. KETOROLAC (WATSON LABORATORIES) [Suspect]
     Indication: PAIN
     Dosage: 60 MG, SINGLE
  4. CIPROFLOXACIN HCL [Suspect]
     Indication: PROPHYLAXIS
     Dosage: 500 MG, X 2
  5. GENTAMICIN SULFATE (WATSON LABORATORIES) [Suspect]
     Indication: PROPHYLAXIS
     Dosage: 80 MG, SINGLE

REACTIONS (3)
  - HYPERSENSITIVITY [None]
  - RENAL FAILURE ACUTE [None]
  - TUBULOINTERSTITIAL NEPHRITIS [None]
